FAERS Safety Report 6733720-4 (Version None)
Quarter: 2010Q2

REPORT INFORMATION
  Report Type: 
  Country: None (occurrence: None)
  Receive Date: 20100520
  Receipt Date: 20100507
  Transmission Date: 20101027
  Serious: Yes (Other)
  Sender: FDA-Public Use
  Company Number: PHFR2010GB00578

PATIENT
  Sex: Male

DRUGS (1)
  1. ALISKIREN [Suspect]
     Dosage: UNK
     Dates: start: 20081001, end: 20081201

REACTIONS (3)
  - BLOOD CREATININE INCREASED [None]
  - BLOOD POTASSIUM INCREASED [None]
  - GLOMERULAR FILTRATION RATE DECREASED [None]
